FAERS Safety Report 5006593-8 (Version None)
Quarter: 2006Q2

REPORT INFORMATION
  Report Type: 
  Country: None (occurrence: None)
  Receive Date: 20060519
  Receipt Date: 20060424
  Transmission Date: 20061013
  Serious: Yes (Death)
  Sender: FDA-Public Use
  Company Number: US-GLAXOSMITHKLINE-A0603029A

PATIENT
  Age: 14 Year
  Sex: Male

DRUGS (4)
  1. WELLBUTRIN XL [Suspect]
     Indication: DEPRESSION
     Route: 048
  2. AMPHETAMINE [Concomitant]
  3. CANNABIS [Concomitant]
  4. ALCOHOL [Concomitant]

REACTIONS (5)
  - BRADYCARDIA [None]
  - BRAIN DEATH [None]
  - BRAIN OEDEMA [None]
  - INTENTIONAL OVERDOSE [None]
  - MYOCLONIC EPILEPSY [None]
